FAERS Safety Report 16223897 (Version 2)
Quarter: 2019Q2

REPORT INFORMATION
  Report Type: Report from Study
  Country: JP (occurrence: JP)
  Receive Date: 20190422
  Receipt Date: 20190521
  Transmission Date: 20190711
  Serious: Yes (Hospitalization)
  Sender: FDA-Public Use
  Company Number: JP-EISAI MEDICAL RESEARCH-EC-2019-055288

PATIENT
  Age: 77 Year
  Sex: Male
  Weight: 44 kg

DRUGS (1)
  1. LENVIMA [Suspect]
     Active Substance: LENVATINIB
     Indication: HEPATOCELLULAR CARCINOMA
     Route: 048
     Dates: start: 20181105, end: 20181115

REACTIONS (1)
  - Liver disorder [Not Recovered/Not Resolved]

NARRATIVE: CASE EVENT DATE: 20181108
